FAERS Safety Report 10477842 (Version 2)
Quarter: 2014Q4

REPORT INFORMATION
  Report Type: Spontaneous
  Country: SE (occurrence: SE)
  Receive Date: 20140926
  Receipt Date: 20141013
  Transmission Date: 20150528
  Serious: Yes (Other)
  Sender: FDA-Public Use
  Company Number: SE-GE HEALTHCARE MEDICAL DIAGNOSTICS-OSCN-PR-1409S-0145

PATIENT
  Sex: Male
  Weight: 74 kg

DRUGS (2)
  1. OMNISCAN [Suspect]
     Active Substance: GADODIAMIDE
     Indication: MULTIPLE SCLEROSIS
     Route: 042
     Dates: start: 20131209, end: 20131209
  2. OMNISCAN [Suspect]
     Active Substance: GADODIAMIDE
     Indication: DIAGNOSTIC PROCEDURE

REACTIONS (24)
  - Nephrogenic systemic fibrosis [Unknown]
  - Visual impairment [Unknown]
  - Headache [Unknown]
  - Dizziness [Unknown]
  - Neck pain [Unknown]
  - Skin disorder [Unknown]
  - Foreign body sensation in eyes [Unknown]
  - Temperature intolerance [Unknown]
  - Local swelling [Unknown]
  - Rash [Unknown]
  - Pain of skin [Unknown]
  - Myalgia [Unknown]
  - Bone pain [Unknown]
  - Pruritus [Unknown]
  - Back pain [Unknown]
  - Abdominal pain lower [Unknown]
  - Arthralgia [Unknown]
  - Diarrhoea [Unknown]
  - Chest discomfort [Unknown]
  - Liver function test abnormal [Unknown]
  - Lipoma [Unknown]
  - Chest pain [Unknown]
  - Prostatic pain [Unknown]
  - Pain in extremity [Unknown]
